FAERS Safety Report 8123212-2 (Version None)
Quarter: 2012Q1

REPORT INFORMATION
  Report Type: 
  Country: None (occurrence: None)
  Receive Date: 20120208
  Receipt Date: 20120201
  Transmission Date: 20120608
  Serious: Yes (Hospitalization, Other)
  Sender: FDA-Public Use
  Company Number: PHHY2012TR008578

PATIENT
  Age: 24 Year
  Sex: Male

DRUGS (6)
  1. SERTRALINE HYDROCHLORIDE [Interacting]
     Dosage: 200 MG, QD
  2. RISPERIDONE [Interacting]
     Dosage: 2 MG, QD
  3. RISPERIDONE [Interacting]
     Indication: OBSESSIVE-COMPULSIVE DISORDER
     Dosage: 1 MG, QD
  4. SERTRALINE HYDROCHLORIDE [Interacting]
     Dosage: 200 MG, QD
  5. SERTRALINE HYDROCHLORIDE [Interacting]
     Dosage: 50 MG, QD
     Dates: start: 20070901
  6. SERTRALINE HYDROCHLORIDE [Suspect]
     Indication: OBSESSIVE-COMPULSIVE DISORDER
     Dosage: UNK
     Dates: start: 20040201

REACTIONS (2)
  - PRIAPISM [None]
  - DRUG INTERACTION [None]
